FAERS Safety Report 11309410 (Version 3)
Quarter: 2015Q3

REPORT INFORMATION
  Report Type: Spontaneous
  Country: JP (occurrence: JP)
  Receive Date: 20150724
  Receipt Date: 20150825
  Transmission Date: 20151125
  Serious: Yes (Other)
  Sender: FDA-Public Use
  Company Number: JP-BAYER-2015-380364

PATIENT
  Sex: Male
  Weight: 2.1 kg

DRUGS (2)
  1. UNFRACTIONATED HEPARIN [Concomitant]
     Active Substance: HEPARIN SODIUM
     Dosage: 10000 U, QD
     Route: 064
  2. BAYASPIRIN [Suspect]
     Active Substance: ASPIRIN
     Indication: THROMBOSIS PROPHYLAXIS
     Dosage: 100 MG, QD
     Route: 064

REACTIONS (3)
  - Low birth weight baby [None]
  - Foetal exposure timing unspecified [Recovered/Resolved]
  - Premature baby [None]
